FAERS Safety Report 5006690-7 (Version None)
Quarter: 2006Q2

REPORT INFORMATION
  Report Type: 
  Country: None (occurrence: None)
  Receive Date: 20060519
  Receipt Date: 20050725
  Transmission Date: 20061013
  Serious: Yes (Life-Threatening, Hospitalization)
  Sender: FDA-Public Use
  Company Number: DE-ROCHE-411637

PATIENT
  Age: 46 Year
  Sex: Male

DRUGS (3)
  1. MYCOPHENOLATE MOFETIL [Suspect]
     Route: 048
     Dates: start: 20050605
  2. FK506 [Suspect]
     Route: 048
     Dates: start: 20050605, end: 20050618
  3. FK506 [Suspect]
     Route: 048
     Dates: start: 20050618, end: 20050707

REACTIONS (3)
  - NEUROTOXICITY [None]
  - RESPIRATORY FAILURE [None]
  - TREMOR [None]
